FAERS Safety Report 5673113-4 (Version None)
Quarter: 2008Q1

REPORT INFORMATION
  Report Type: 
  Country: None (occurrence: None)
  Receive Date: 20080319
  Receipt Date: 20080317
  Transmission Date: 20080703
  Serious: Yes (Other)
  Sender: FDA-Public Use
  Company Number: NL-ASTRAZENECA-2008AC00694

PATIENT
  Age: 9230 Day
  Sex: Female
  Weight: 82 kg

DRUGS (4)
  1. SEROQUEL [Suspect]
     Indication: PSYCHOTIC DISORDER
     Route: 048
  2. CISORDINOL [Suspect]
     Indication: PSYCHOTIC DISORDER
  3. TEMESTA [Suspect]
     Indication: INSOMNIA
  4. ALPRAZOLAM [Suspect]
     Indication: INSOMNIA

REACTIONS (2)
  - BLOOD FOLLICLE STIMULATING HORMONE INCREASED [None]
  - BLOOD LUTEINISING HORMONE INCREASED [None]
